FAERS Safety Report 14974772 (Version 1)
Quarter: 2018Q2

REPORT INFORMATION
  Report Type: Spontaneous
  Country: CN (occurrence: CN)
  Receive Date: 20180605
  Receipt Date: 20180605
  Transmission Date: 20180711
  Serious: Yes (Other)
  Sender: FDA-Public Use
  Company Number: CN-ASTRAZENECA-2018SE73025

PATIENT
  Age: 11835 Day
  Sex: Female
  Weight: 60 kg

DRUGS (3)
  1. BUDESONIDE. [Suspect]
     Active Substance: BUDESONIDE
     Indication: INFECTION
     Route: 055
     Dates: start: 20180402, end: 20180402
  2. TERBUTALINE SULFATE. [Suspect]
     Active Substance: TERBUTALINE SULFATE
     Indication: WHEEZING
     Route: 055
     Dates: start: 20180402, end: 20180402
  3. SODIUM CHLORIDE. [Concomitant]
     Active Substance: SODIUM CHLORIDE
     Indication: VEHICLE SOLUTION USE
     Route: 055
     Dates: start: 20180402, end: 20180402

REACTIONS (4)
  - Palpitations [Recovering/Resolving]
  - Tachycardia [Recovering/Resolving]
  - Chest discomfort [Recovering/Resolving]
  - Dyspnoea [Recovering/Resolving]

NARRATIVE: CASE EVENT DATE: 20180402
